FAERS Safety Report 6837707-2 (Version None)
Quarter: 2010Q3

REPORT INFORMATION
  Report Type: 
  Country: None (occurrence: None)
  Receive Date: 20100707
  Receipt Date: 20100625
  Transmission Date: 20110219
  Serious: Yes (Other)
  Sender: FDA-Public Use
  Company Number: 2010SP032863

PATIENT
  Age: 55 Year
  Sex: Female

DRUGS (3)
  1. REBETOL [Suspect]
     Indication: PRODUCT USED FOR UNKNOWN INDICATION
     Dosage: 1000 MG; QD; PO
     Route: 048
     Dates: start: 20100423, end: 20100521
  2. PEGASYS [Suspect]
     Indication: PRODUCT USED FOR UNKNOWN INDICATION
     Dosage: 180 MCG; QW; SC, 135 MCG; QW; SC
     Route: 058
     Dates: end: 20100521
  3. PEGASYS [Suspect]
     Indication: PRODUCT USED FOR UNKNOWN INDICATION
     Dosage: 180 MCG; QW; SC, 135 MCG; QW; SC
     Route: 058
     Dates: start: 20100423

REACTIONS (4)
  - DYSPNOEA [None]
  - EYE SWELLING [None]
  - MALAISE [None]
  - PRURITUS [None]
